FAERS Safety Report 5604497-0 (Version None)
Quarter: 2008Q1

REPORT INFORMATION
  Report Type: 
  Country: None (occurrence: None)
  Receive Date: 20080128
  Receipt Date: 20080116
  Transmission Date: 20080703
  Serious: Yes (Death, Hospitalization)
  Sender: FDA-Public Use
  Company Number: PT-ROCHE-530531

PATIENT
  Age: 65 Year
  Sex: Male
  Weight: 60 kg

DRUGS (2)
  1. XELODA [Suspect]
     Indication: CHEMOTHERAPY
     Dosage: TAKEN FOR 14 DAYS.
     Route: 048
     Dates: start: 20071018
  2. COVERSYL [Concomitant]
     Route: 048

REACTIONS (10)
  - ASTHENIA [None]
  - DIARRHOEA [None]
  - DYSPHAGIA [None]
  - GENERALISED ERYTHEMA [None]
  - NEUTROPENIA [None]
  - PNEUMONIA [None]
  - RENAL FAILURE [None]
  - SEPSIS [None]
  - SKIN EXFOLIATION [None]
  - STOMATITIS [None]
